FAERS Safety Report 6985425 (Version 2)
Quarter: 2014Q2

REPORT INFORMATION
  Report Type: Spontaneous
  Country: US (occurrence: US)
  Receive Date: 20090504
  Receipt Date: 20140415
  Transmission Date: 20141212
  Serious: Yes (Other)
  Sender: FDA-Public Use
  Company Number: US-ALEXION-A200800444

PATIENT
  Age: 76 Year
  Sex: Female
  Weight: 71 kg

DRUGS (8)
  1. SOLIRIS [Suspect]
     Indication: PAROXYSMAL NOCTURNAL HAEMOGLOBINURIA
     Dosage: UNK
     Route: 042
  2. BABY ASPIRIN [Concomitant]
     Dosage: UNK
     Route: 048
  3. MULTIVITAMINS [Concomitant]
     Dosage: UNK
     Route: 048
  4. CALCIUM D                          /01272001/ [Concomitant]
     Dosage: UNK
     Route: 048
  5. LEVOTHROID [Concomitant]
     Dosage: 75 UG, QD
  6. FOLIC ACID [Concomitant]
     Dosage: 1 MG, BID
     Route: 048
  7. ALENDRONATE SODIUM [Concomitant]
     Dosage: 70 MG, UNK
     Route: 048
  8. LISINOPRIL [Concomitant]
     Dosage: 5 MG, QD
     Route: 048

REACTIONS (4)
  - Epistaxis [Unknown]
  - Fall [Unknown]
  - Nasal dryness [Recovered/Resolved]
  - Contusion [Recovering/Resolving]
